FAERS Safety Report 7834156-5 (Version None)
Quarter: 2011Q4

REPORT INFORMATION
  Report Type: 
  Country: None (occurrence: None)
  Receive Date: 20111024
  Receipt Date: 20111012
  Transmission Date: 20120403
  Serious: Yes (Other)
  Sender: FDA-Public Use
  Company Number: PHEH2009US02468

PATIENT
  Sex: Female

DRUGS (26)
  1. ONDANSETRON HCL [Concomitant]
  2. ATENOLOL [Concomitant]
     Route: 048
  3. AREDIA [Suspect]
     Indication: NEOPLASM MALIGNANT
  4. CLINDAMYCIN HCL [Concomitant]
     Dosage: 300 MG, Q6H
     Route: 048
     Dates: start: 20080522
  5. THALOMID [Concomitant]
     Route: 048
  6. ZOFRAN [Concomitant]
     Dosage: 4 MG, Q4H PRN
  7. DECADRON [Concomitant]
     Dosage: 8 MG, UNK
  8. ALBUTEROL SULFATE [Concomitant]
     Route: 048
  9. TENORMIN [Concomitant]
     Dosage: 25 MG, QD
  10. CLEOCIN HYDROCHLORIDE [Concomitant]
  11. GLEEVEC [Concomitant]
     Route: 048
  12. CHLORHEXIDINE GLUCONATE [Concomitant]
  13. PREVACID [Concomitant]
  14. VITAMIN D [Concomitant]
     Route: 048
  15. TYLENOL-500 [Concomitant]
  16. PROTONIX [Concomitant]
     Dosage: 40 MG, UNK
  17. PROCRIT [Concomitant]
  18. BENADRYL [Concomitant]
  19. VIACTIV [Concomitant]
     Route: 048
  20. PERCOCET [Concomitant]
  21. ZOMETA [Suspect]
     Indication: NEOPLASM MALIGNANT
  22. CIPROFLOXACIN HYDROCHLORIDE [Concomitant]
  23. CENTRUM SILVER [Concomitant]
     Route: 048
  24. SYNTHROID [Concomitant]
     Route: 048
  25. INFLUENZA VACCINE [Concomitant]
     Dosage: UNK
     Dates: start: 20071001
  26. PNEUMOCOCCAL VACCINE [Concomitant]

REACTIONS (39)
  - DEFORMITY [None]
  - SINUSITIS [None]
  - CERUMEN IMPACTION [None]
  - RESPIRATORY FAILURE [None]
  - TOOTHACHE [None]
  - BREAST CANCER [None]
  - VISUAL IMPAIRMENT [None]
  - OCULAR HYPERAEMIA [None]
  - DIPLOPIA [None]
  - OSTEONECROSIS [None]
  - INJURY [None]
  - OESOPHAGITIS [None]
  - VERTIGO [None]
  - MIXED DEAFNESS [None]
  - CELLULITIS ORBITAL [None]
  - PLEURAL EFFUSION [None]
  - BLOOD CREATININE INCREASED [None]
  - MENINGIOMA [None]
  - ANHEDONIA [None]
  - ANXIETY [None]
  - DISABILITY [None]
  - MULTIPLE MYELOMA [None]
  - HYPERTENSION [None]
  - THYROID CANCER [None]
  - FACIAL BONES FRACTURE [None]
  - DIZZINESS [None]
  - WHITE BLOOD CELL COUNT DECREASED [None]
  - PAIN [None]
  - EATING DISORDER [None]
  - LEUKAEMIA [None]
  - NEOPLASM MALIGNANT [None]
  - BACTEROIDES TEST POSITIVE [None]
  - BIFIDOBACTERIUM TEST POSITIVE [None]
  - RESPIRATORY TRACT OEDEMA [None]
  - ANAEMIA [None]
  - EYE PAIN [None]
  - EYE SWELLING [None]
  - STAPHYLOCOCCUS TEST POSITIVE [None]
  - RED BLOOD CELL SEDIMENTATION RATE INCREASED [None]
